FAERS Safety Report 6621664-8 (Version None)
Quarter: 2010Q1

REPORT INFORMATION
  Report Type: 
  Country: None (occurrence: None)
  Receive Date: 20100223
  Receipt Date: 20100119
  Transmission Date: 20100710
  Serious: No
  Sender: FDA-Public Use
  Company Number: 005156

PATIENT
  Sex: Female
  Weight: 46.8 kg

DRUGS (16)
  1. CIMZIA [Suspect]
     Indication: RHEUMATOID ARTHRITIS
     Dosage: 400 MG 400 MG SUBCUTANEOUS
     Route: 058
     Dates: start: 20091001
  2. CHLORTHALIDONE [Concomitant]
  3. TOPROL-XL [Concomitant]
  4. LYRICA [Concomitant]
  5. BIOTIN [Concomitant]
  6. TIKOSYN [Concomitant]
  7. SYNTHROID [Concomitant]
  8. PRINIVIL [Concomitant]
  9. PREDNISONE [Concomitant]
  10. CALCITROL /00508501/ [Concomitant]
  11. PREMARIN [Concomitant]
  12. PRILOSEC [Concomitant]
  13. CALCIUM W/VITAMIN D /00188401/ [Concomitant]
  14. CHLORZOXAZONE [Concomitant]
  15. COUMADIN [Concomitant]
  16. FERROUS SULFATE TAB [Concomitant]

REACTIONS (2)
  - CYSTITIS [None]
  - RASH [None]
